FAERS Safety Report 7034731-4 (Version None)
Quarter: 2010Q4

REPORT INFORMATION
  Report Type: 
  Country: None (occurrence: None)
  Receive Date: 20101008
  Receipt Date: 20100927
  Transmission Date: 20110411
  Serious: Yes (Hospitalization)
  Sender: FDA-Public Use
  Company Number: PHHO2010JP13012

PATIENT
  Sex: Female
  Weight: 44 kg

DRUGS (8)
  1. ALISKIREN ALI+TAB+CVR [Suspect]
     Indication: CARDIOVASCULAR DISORDER
     Dosage: CODE NOT BROKEN
     Route: 048
     Dates: start: 20080807
  2. FERROUS SULFATE TAB [Concomitant]
  3. ACECOL [Concomitant]
  4. LASIX [Concomitant]
  5. MEVALOTIN [Concomitant]
  6. NOVORAPID [Concomitant]
  7. ZYLORIC [Concomitant]
  8. RESCULA [Concomitant]

REACTIONS (13)
  - ANAEMIA OF CHRONIC DISEASE [None]
  - C-REACTIVE PROTEIN INCREASED [None]
  - DECREASED APPETITE [None]
  - DEHYDRATION [None]
  - DENTAL CARIES [None]
  - EAR PAIN [None]
  - ENDOCARDITIS [None]
  - INFLAMMATION [None]
  - MALAISE [None]
  - PELVIC FLUID COLLECTION [None]
  - PYREXIA [None]
  - TOOTH EXTRACTION [None]
  - URINARY TRACT INFECTION [None]
